FAERS Safety Report 11619166 (Version 1)
Quarter: 2015Q4

REPORT INFORMATION
  Report Type: Spontaneous
  Country: US (occurrence: US)
  Receive Date: 20151012
  Receipt Date: 20151012
  Transmission Date: 20160304
  Serious: Yes (Other)
  Sender: FDA-Public Use
  Company Number: US-ASTELLAS-2015US037041

PATIENT
  Age: 58 Year
  Sex: Female

DRUGS (1)
  1. AMBISOME [Suspect]
     Active Substance: AMPHOTERICIN B
     Indication: KERATITIS FUNGAL
     Dosage: 0.5 UG/ML, UNKNOWN FREQ.
     Route: 047

REACTIONS (2)
  - Drug ineffective [Recovered/Resolved]
  - Off label use [Recovered/Resolved]
